FAERS Safety Report 5933428-9 (Version None)
Quarter: 2008Q4

REPORT INFORMATION
  Report Type: 
  Country: None (occurrence: None)
  Receive Date: 20081023
  Receipt Date: 20081017
  Transmission Date: 20090506
  Serious: Yes (Hospitalization)
  Sender: FDA-Public Use
  Company Number: RENA-1000135

PATIENT
  Age: 74 Year
  Sex: Male
  Weight: 115.6 kg

DRUGS (22)
  1. RENAGEL [Suspect]
     Indication: HYPERPHOSPHATAEMIA
     Dosage: 0.8 G, TID, ORAL
     Route: 048
     Dates: start: 20080530, end: 20080601
  2. ARANESP [Concomitant]
  3. ZOCOR [Concomitant]
  4. PROSCAR [Concomitant]
  5. MV (VITAMINS NOS) [Concomitant]
  6. DEXAMETHASONE [Concomitant]
  7. REVLIMID [Concomitant]
  8. NORVAL (MIANSERIN HYDROCHLORIDE) [Concomitant]
  9. NTG (GLYCERYL TRINITRATE) [Concomitant]
  10. ELAVIL [Concomitant]
  11. AMBIEN [Concomitant]
  12. TOPROL-XL [Concomitant]
  13. HYDROCODONE (HYDROCODONE) [Concomitant]
  14. CALCITONIN (CALCITONIN) [Concomitant]
  15. LACTULON (LACTULOSE) [Concomitant]
  16. TUMS (CALCIUM CARBONATE) [Concomitant]
  17. METHADONE HCL [Concomitant]
  18. MEGACE [Concomitant]
  19. POTASSIUM CHLORIDE [Concomitant]
  20. FLOMAX [Concomitant]
  21. COLACE (DOCUSATE SODIUM) [Concomitant]
  22. DULCOLAX (DOCUSATE SODIUM) [Concomitant]

REACTIONS (4)
  - ANGINA PECTORIS [None]
  - CHEST DISCOMFORT [None]
  - PRURITUS [None]
  - URTICARIA [None]
